FAERS Safety Report 7910810-1 (Version None)
Quarter: 2011Q4

REPORT INFORMATION
  Report Type: 
  Country: None (occurrence: None)
  Receive Date: 20111114
  Receipt Date: 20111103
  Transmission Date: 20120403
  Serious: Yes (Death, Hospitalization, Other)
  Sender: FDA-Public Use
  Company Number: AR-AMGEN-ARGSP2011049209

PATIENT
  Age: 69 Year
  Sex: Female

DRUGS (2)
  1. ENBREL [Suspect]
     Indication: RHEUMATOID ARTHRITIS
     Dosage: 50 MG, WEEKLY
     Route: 058
     Dates: start: 20110412
  2. OMEPRAZOLE [Concomitant]
     Dosage: UNK

REACTIONS (3)
  - PULMONARY FIBROSIS [None]
  - RHEUMATOID ARTHRITIS [None]
  - PNEUMONIA [None]
